FAERS Safety Report 8484667-7 (Version None)
Quarter: 2012Q3

REPORT INFORMATION
  Report Type: 
  Country: None (occurrence: None)
  Receive Date: 20120703
  Receipt Date: 20120621
  Transmission Date: 20120928
  Serious: Yes (Other)
  Sender: FDA-Public Use
  Company Number: SE-BRISTOL-MYERS SQUIBB COMPANY-16710139

PATIENT
  Age: 83 Year
  Sex: Male

DRUGS (1)
  1. MITOMYCIN [Suspect]
     Indication: BLADDER CANCER
     Dosage: MITOMYCIN INJ
     Route: 043
     Dates: start: 20120111, end: 20120328

REACTIONS (2)
  - CYSTITIS [None]
  - URETHRITIS [None]
